FAERS Safety Report 5452030-9 (Version None)
Quarter: 2007Q3

REPORT INFORMATION
  Report Type: 
  Country: None (occurrence: None)
  Receive Date: 20070912
  Receipt Date: 20070831
  Transmission Date: 20080115
  Serious: Yes (Other)
  Sender: FDA-Public Use
  Company Number: PERC20070055

PATIENT
  Age: 28 Year
  Sex: Female

DRUGS (4)
  1. PERCOCET [Suspect]
     Indication: ATTENTION DEFICIT/HYPERACTIVITY DISORDER
     Dosage: 1 TAB TID, PER ORAL
     Route: 048
     Dates: start: 20050101, end: 20070801
  2. ADDERALL 20 [Suspect]
     Indication: ATTENTION DEFICIT/HYPERACTIVITY DISORDER
     Dosage: 20 MG TID, PER ORAL
     Route: 048
     Dates: start: 20030101
  3. XANAX [Suspect]
     Indication: ANXIETY
     Dosage: 2 MG, TID, PER ORAL
     Route: 048
  4. ENDOCET 10MG/650MG [Suspect]
     Indication: PAIN
     Dosage: 1 TAB, ONCE, PER ORAL
     Route: 048
     Dates: end: 20070829

REACTIONS (4)
  - ABORTION SPONTANEOUS [None]
  - DRUG EXPOSURE DURING PREGNANCY [None]
  - RASH GENERALISED [None]
  - RASH PRURITIC [None]
